FAERS Safety Report 8607852-X (Version None)
Quarter: 2012Q3

REPORT INFORMATION
  Report Type: 
  Country: None (occurrence: None)
  Receive Date: 20120821
  Receipt Date: 20120817
  Transmission Date: 20120928
  Serious: Yes (Death, Other)
  Sender: FDA-Public Use
  Company Number: PHFR2012GB004554

PATIENT
  Age: 86 Year
  Sex: Female

DRUGS (1)
  1. RITALIN [Suspect]
     Indication: AGITATION

REACTIONS (6)
  - DEATH [None]
  - DIABETES MELLITUS [None]
  - DRUG ADMINISTERED TO PATIENT OF INAPPROPRIATE AGE [None]
  - RENAL IMPAIRMENT [None]
  - DEMENTIA [None]
  - CARDIAC DISORDER [None]
